FAERS Safety Report 5445459-6 (Version None)
Quarter: 2007Q3

REPORT INFORMATION
  Report Type: 
  Country: None (occurrence: None)
  Receive Date: 20070731
  Receipt Date: 20070618
  Transmission Date: 20080115
  Serious: No
  Sender: FDA-Public Use
  Company Number: US200706004265

PATIENT
  Age: 77 Year
  Sex: Female

DRUGS (4)
  1. BYETTA [Suspect]
     Indication: TYPE 2 DIABETES MELLITUS
     Dosage: SEE IMAGE
     Route: 058
     Dates: start: 20060101
  2. EXENATIDE PEN, DISPOSABLE DEVICE (EXENATIDE PEN [Concomitant]
  3. NPH INSULIN (INSULIN INJECTION, ISOPHANE) [Concomitant]
  4. GLUCOPHAGE [Concomitant]

REACTIONS (1)
  - WEIGHT FLUCTUATION [None]
